FAERS Safety Report 5205188-0 (Version None)
Quarter: 2007Q1

REPORT INFORMATION
  Report Type: 
  Country: None (occurrence: None)
  Receive Date: 20070110
  Receipt Date: 20061229
  Transmission Date: 20070707
  Serious: Yes (Life-Threatening, Other)
  Sender: FDA-Public Use
  Company Number: US-PFIZER INC-2006130503

PATIENT
  Sex: Female
  Weight: 83.5 kg

DRUGS (3)
  1. VFEND [Suspect]
     Indication: CYSTITIS
     Dates: start: 20060801, end: 20060801
  2. COUMADIN [Suspect]
  3. DRUG, UNSPECIFIED [Concomitant]

REACTIONS (6)
  - ASTHENIA [None]
  - BLOOD GLUCOSE DECREASED [None]
  - INTERNATIONAL NORMALISED RATIO INCREASED [None]
  - OEDEMA PERIPHERAL [None]
  - PAIN [None]
  - THROMBOSIS [None]
